FAERS Safety Report 17996987 (Version 1)
Quarter: 2020Q3

REPORT INFORMATION
  Report Type: Spontaneous
  Country: BR (occurrence: BR)
  Receive Date: 20200708
  Receipt Date: 20200708
  Transmission Date: 20201103
  Serious: Yes (Hospitalization)
  Sender: FDA-Public Use
  Company Number: BR-ABBVIE-20P-020-3471175-00

PATIENT
  Age: 50 Year
  Sex: Female
  Weight: 80 kg

DRUGS (2)
  1. SYNTHROID [Suspect]
     Active Substance: LEVOTHYROXINE SODIUM
     Indication: THYROID HORMONE REPLACEMENT THERAPY
     Dosage: F. STRENGTH: SMALLER THAN 137 MCG
     Route: 048
  2. SYNTHROID [Suspect]
     Active Substance: LEVOTHYROXINE SODIUM
     Dosage: TAKES RIGHT AFTER WAKING UP; STARTED AFTER THYROID SURGERY
     Route: 048

REACTIONS (3)
  - Thyroid mass [Unknown]
  - Hypertension [Unknown]
  - Bone pain [Unknown]
